FAERS Safety Report 12276020 (Version 3)
Quarter: 2016Q2

REPORT INFORMATION
  Report Type: Report from Study
  Country: JP (occurrence: JP)
  Receive Date: 20160418
  Receipt Date: 20160504
  Transmission Date: 20160815
  Serious: Yes (Death)
  Sender: FDA-Public Use
  Company Number: JP-009507513-1604JPN010293

PATIENT
  Age: 43 Year
  Sex: Male

DRUGS (6)
  1. TRUVADA [Concomitant]
     Active Substance: EMTRICITABINE\TENOFOVIR DISOPROXIL FUMARATE
     Indication: HIV INFECTION
     Dosage: TOTAL DAILY DOSE: 1 (DOSAGE FORM), DIVIDED DOSE, FREQUENCY UNKNOWN
     Route: 048
     Dates: start: 20050621, end: 20160127
  2. NESINA [Concomitant]
     Active Substance: ALOGLIPTIN BENZOATE
     Indication: DIABETES MELLITUS
     Dosage: 1 MG, QD, FORMULATION: POR
     Route: 048
     Dates: end: 20160127
  3. ISENTRESS [Suspect]
     Active Substance: RALTEGRAVIR POTASSIUM
     Indication: HIV INFECTION
     Dosage: TOTAL DAILY DOSE: 800 MG, DIVIDED DOSE, FREQUENCY UNKNOWN
     Route: 048
     Dates: start: 20110323, end: 20160127
  4. FACTOR VIII [Concomitant]
     Active Substance: ANTIHEMOPHILIC FACTOR HUMAN
     Indication: FACTOR VIII DEFICIENCY
     Dosage: 1 THOUSAND-MILLION UNIT, 10 TIMES MONTHLY
     Route: 051
     Dates: end: 20160127
  5. AMARYL [Concomitant]
     Active Substance: GLIMEPIRIDE
     Indication: DIABETES MELLITUS
     Dosage: 1 MG, QD, FORMULATION: POR
     Route: 048
     Dates: end: 20160127
  6. AMLODIN (AMLODIPINE BESYLATE) [Concomitant]
     Active Substance: AMLODIPINE BESYLATE
     Indication: HYPERTENSION
     Dosage: 5 MG, QD, FORMULATION: POR
     Route: 048
     Dates: end: 20160127

REACTIONS (1)
  - Oesophageal varices haemorrhage [Fatal]

NARRATIVE: CASE EVENT DATE: 20160127
